FAERS Safety Report 7760918-9 (Version None)
Quarter: 2011Q3

REPORT INFORMATION
  Report Type: 
  Country: None (occurrence: None)
  Receive Date: 20110919
  Receipt Date: 20110914
  Transmission Date: 20111222
  Serious: Yes (Death)
  Sender: FDA-Public Use
  Company Number: US-GILEAD-2011-0043933

PATIENT
  Age: 64 Year
  Sex: Female

DRUGS (3)
  1. REVATIO [Concomitant]
  2. VENTAVIS [Concomitant]
  3. LETAIRIS [Suspect]
     Indication: PRODUCT USED FOR UNKNOWN INDICATION
     Route: 048
     Dates: start: 20100121, end: 20110827

REACTIONS (1)
  - DEATH [None]
